FAERS Safety Report 6445451-9 (Version None)
Quarter: 2009Q4

REPORT INFORMATION
  Report Type: 
  Country: None (occurrence: None)
  Receive Date: 20091118
  Receipt Date: 20091109
  Transmission Date: 20100525
  Serious: Yes (Other)
  Sender: FDA-Public Use
  Company Number: BR-ABBOTT-09P-020-0607718-00

PATIENT
  Sex: Female
  Weight: 63 kg

DRUGS (7)
  1. HUMIRA [Suspect]
     Indication: MUSCULOSKELETAL PAIN
     Route: 058
     Dates: start: 20081201
  2. HUMIRA [Suspect]
     Route: 058
  3. ARAVA [Concomitant]
     Indication: MUSCULOSKELETAL PAIN
     Dosage: 1 PER DAY
     Route: 048
     Dates: start: 20070101
  4. PREDNISONE [Concomitant]
     Indication: PAIN
     Route: 048
     Dates: start: 20070101
  5. CALCIUM [Concomitant]
     Indication: BONE DISORDER
     Route: 048
     Dates: start: 20070101
  6. FOLIC ACID [Concomitant]
     Indication: ANAEMIA
     Dosage: 2 PER WEEK
     Route: 048
     Dates: start: 20070101
  7. METHOTREXATE [Concomitant]
     Indication: MUSCULOSKELETAL PAIN
     Route: 048
     Dates: start: 20070101

REACTIONS (8)
  - FALL [None]
  - MUSCLE SPASMS [None]
  - MUSCULOSKELETAL PAIN [None]
  - NECK PAIN [None]
  - OSTEOPENIA [None]
  - PAIN IN EXTREMITY [None]
  - PARAESTHESIA [None]
  - UPPER LIMB FRACTURE [None]
